FAERS Safety Report 11192293 (Version 1)
Quarter: 2015Q2

REPORT INFORMATION
  Report Type: Spontaneous
  Country: FR (occurrence: FR)
  Receive Date: 20150616
  Receipt Date: 20150616
  Transmission Date: 20150821
  Serious: Yes (Other)
  Sender: FDA-Public Use
  Company Number: FR-ROCHE-1593204

PATIENT
  Age: 3 Year
  Sex: Female

DRUGS (2)
  1. RIVOTRIL [Suspect]
     Active Substance: CLONAZEPAM
     Indication: PRODUCT USED FOR UNKNOWN INDICATION
     Route: 064
  2. RIVOTRIL [Suspect]
     Active Substance: CLONAZEPAM
     Route: 063

REACTIONS (4)
  - Speech disorder [Not Recovered/Not Resolved]
  - Foetal exposure during pregnancy [Unknown]
  - Growth retardation [Not Recovered/Not Resolved]
  - Exposure during breast feeding [Unknown]
